FAERS Safety Report 8358347-2 (Version None)
Quarter: 2012Q2

REPORT INFORMATION
  Report Type: 
  Country: None (occurrence: None)
  Receive Date: 20120514
  Receipt Date: 20110428
  Transmission Date: 20120825
  Serious: No
  Sender: FDA-Public Use
  Company Number: US-ALEXION-A201100606

PATIENT
  Sex: Female

DRUGS (3)
  1. VITAMIN B COMPLEX CAP [Concomitant]
     Indication: ROUTINE HEALTH MAINTENANCE
     Dosage: UNK QD
     Route: 048
  2. SOLIRIS [Suspect]
     Indication: PAROXYSMAL NOCTURNAL HAEMOGLOBINURIA
     Dosage: 900 MG Q2W
     Route: 042
  3. VITAMIN A [Concomitant]
     Indication: ROUTINE HEALTH MAINTENANCE
     Dosage: UNK QD

REACTIONS (2)
  - INFLUENZA [None]
  - CHROMATURIA [None]
